FAERS Safety Report 11748956 (Version 1)
Quarter: 2015Q4

REPORT INFORMATION
  Report Type: Spontaneous
  Country: US (occurrence: US)
  Receive Date: 20151118
  Receipt Date: 20151118
  Transmission Date: 20160304
  Serious: No
  Sender: FDA-Public Use
  Company Number: US-ASTRAZENECA-2015SF08565

PATIENT
  Sex: Male

DRUGS (1)
  1. TUDORZA PRESSAIR [Suspect]
     Active Substance: ACLIDINIUM BROMIDE
     Route: 055
     Dates: start: 2013

REACTIONS (8)
  - Disability [Not Recovered/Not Resolved]
  - Off label use [Not Recovered/Not Resolved]
  - Drug dose omission [Unknown]
  - Product quality issue [Unknown]
  - Asthenia [Not Recovered/Not Resolved]
  - Hypoacusis [Not Recovered/Not Resolved]
  - Muscle spasms [Unknown]
  - Cough [Unknown]
